FAERS Safety Report 13693688 (Version 1)
Quarter: 2017Q2

REPORT INFORMATION
  Report Type: Spontaneous
  Country: DE (occurrence: DE)
  Receive Date: 20170627
  Receipt Date: 20170627
  Transmission Date: 20170830
  Serious: Yes (Other)
  Sender: FDA-Public Use
  Company Number: DE-BAYER-2017-117934

PATIENT
  Age: 27 Year
  Sex: Female
  Weight: 80 kg

DRUGS (1)
  1. JAYDESS [Suspect]
     Active Substance: LEVONORGESTREL
     Indication: CONTRACEPTION
     Dosage: 14 MCG/24HR, CONT
     Route: 015
     Dates: start: 20150627

REACTIONS (13)
  - Pelvic pain [Recovered/Resolved]
  - Fatigue [Recovered/Resolved]
  - Hypovitaminosis [Unknown]
  - Depression [None]
  - Limb discomfort [Recovered/Resolved]
  - Immune system disorder [None]
  - Breast pain [Recovered/Resolved]
  - Alopecia [Unknown]
  - Panic attack [Recovered/Resolved]
  - Amenorrhoea [Recovered/Resolved]
  - Sleep disorder [Recovered/Resolved]
  - Restlessness [Recovered/Resolved]
  - Hyperparathyroidism [Recovered/Resolved with Sequelae]

NARRATIVE: CASE EVENT DATE: 2015
